FAERS Safety Report 9300429 (Version 3)
Quarter: 2013Q4

REPORT INFORMATION
  Report Type: Spontaneous
  Country: US (occurrence: None)
  Receive Date: 20130107
  Receipt Date: 20131226
  Transmission Date: 20140711
  Serious: Yes (Other)
  Sender: FDA-Public Use
  Company Number: PHEH2012US020279

PATIENT
  Age: 46 Year
  Sex: Female
  Weight: 53.1 kg

DRUGS (9)
  1. GILENYA (FINGOLIMOD) CAPSULE, 0.5MG [Suspect]
     Indication: RELAPSING-REMITTING MULTIPLE SCLEROSIS
     Dosage: 0.5 MG, QD, ORAL
     Route: 048
     Dates: start: 20121015
  2. XANAX (ALPRAZOLAM), 0.5 MG [Concomitant]
  3. CYMBALTA (DULOXETINE HYDROCHLORIDE), 60 MG? [Concomitant]
  4. LYRICA (PREGABALIN) [Concomitant]
  5. MOTRIN (IBUPROFEN) [Concomitant]
  6. PERCOCET [Concomitant]
  7. MULTIVITAMIN (ASCORBIC ACID, CALCIUM PANTOTHENATE, ERGOCALCIFEROL, NICOTANMIDE, PYRIDOXINE HYDROCHLORIDE, RETINOL, RIBOFLAVIN, THIAMINE HYDROCHLORIDE) [Concomitant]
  8. VITAMIN D NOS (VITAMIN D NOS) [Concomitant]
  9. ONDANSETRON (ONDANSETRON) [Concomitant]

REACTIONS (5)
  - Sinus bradycardia [None]
  - Influenza [None]
  - Dizziness [None]
  - Pain [None]
  - Vomiting [None]
